FAERS Safety Report 8451222-4 (Version None)
Quarter: 2012Q2

REPORT INFORMATION
  Report Type: 
  Country: None (occurrence: None)
  Receive Date: 20120620
  Receipt Date: 20120403
  Transmission Date: 20120825
  Serious: No
  Sender: FDA-Public Use
  Company Number: US-VERTEX PHARMACEUTICALS INC.-AE-2012-000616

PATIENT
  Sex: Male
  Weight: 94.432 kg

DRUGS (7)
  1. INCIVEK [Suspect]
     Indication: HEPATITIS C
     Route: 048
     Dates: start: 20120106, end: 20120330
  2. FINASTERIDE [Concomitant]
     Route: 048
  3. RIBAVIRIN [Concomitant]
     Indication: HEPATITIS C
     Route: 048
     Dates: start: 20120106
  4. METOPROLOL SUCCINATE [Concomitant]
     Indication: HEART RATE
     Route: 048
  5. ENALAPRIL MALEATE AND HYDROCHLOROTHIAZIDE [Concomitant]
     Indication: HYPERTENSION
     Route: 048
  6. HYDROXYZINE HYDROCHLORIDE [Concomitant]
     Dates: start: 20120403
  7. PEGASYS [Concomitant]
     Indication: HEPATITIS C
     Route: 058
     Dates: start: 20120106

REACTIONS (11)
  - HAEMORRHOIDS [None]
  - INFLUENZA LIKE ILLNESS [None]
  - JOINT STIFFNESS [None]
  - INSOMNIA [None]
  - NAUSEA [None]
  - MUSCLE SPASMS [None]
  - PRURITUS [None]
  - PAIN OF SKIN [None]
  - DIARRHOEA [None]
  - SKIN IRRITATION [None]
  - ANAL PRURITUS [None]
